FAERS Safety Report 8265019-1 (Version None)
Quarter: 2012Q2

REPORT INFORMATION
  Report Type: 
  Country: None (occurrence: None)
  Receive Date: 20120406
  Receipt Date: 20120402
  Transmission Date: 20120825
  Serious: Yes (Death, Hospitalization)
  Sender: FDA-Public Use
  Company Number: PHHY2012BR028391

PATIENT
  Sex: Male
  Weight: 95 kg

DRUGS (1)
  1. FORMOTEROL FUMARATE [Suspect]
     Indication: EMPHYSEMA
     Dosage: UNK

REACTIONS (7)
  - EMPHYSEMA [None]
  - INFARCTION [None]
  - RENAL FAILURE ACUTE [None]
  - ARTERIOSCLEROSIS CORONARY ARTERY [None]
  - HYPERTENSION [None]
  - DYSPNOEA [None]
  - SEPTIC SHOCK [None]
